FAERS Safety Report 20746148 (Version 3)
Quarter: 2022Q2

REPORT INFORMATION
  Report Type: Spontaneous
  Country: US (occurrence: US)
  Receive Date: 20220425
  Receipt Date: 20220526
  Transmission Date: 20220720
  Serious: Yes (Other)
  Sender: FDA-Public Use
  Company Number: US-PFIZER INC-202200575790

PATIENT
  Age: 89 Year
  Sex: Female
  Weight: 49.89 kg

DRUGS (2)
  1. ATORVASTATIN CALCIUM [Suspect]
     Active Substance: ATORVASTATIN CALCIUM
     Dosage: 5 MG (NORMALLY 5MG CUT IN HALF OF 10)
  2. ATORVASTATIN CALCIUM [Suspect]
     Active Substance: ATORVASTATIN CALCIUM
     Dosage: 0.05 MG, DAILY

REACTIONS (5)
  - Anaphylactic reaction [Unknown]
  - Off label use [Unknown]
  - COVID-19 [Unknown]
  - Oropharyngeal pain [Unknown]
  - Rhinorrhoea [Unknown]

NARRATIVE: CASE EVENT DATE: 20220409
